FAERS Safety Report 20689967 (Version 1)
Quarter: 2022Q2

REPORT INFORMATION
  Report Type: Spontaneous
  Country: CN (occurrence: CN)
  Receive Date: 20220408
  Receipt Date: 20220408
  Transmission Date: 20220721
  Serious: Yes (Hospitalization, Other)
  Sender: FDA-Public Use
  Company Number: CN-PFIZER INC-202200512399

PATIENT
  Age: 18 Year
  Sex: Male

DRUGS (8)
  1. METHOTREXATE [Suspect]
     Active Substance: METHOTREXATE
     Indication: T-cell type acute leukaemia
     Dosage: 2.7 G, 1X/DAY
     Route: 041
     Dates: start: 20220223, end: 20220323
  2. METHOTREXATE [Suspect]
     Active Substance: METHOTREXATE
     Indication: Chemotherapy
  3. IDARUBICIN [Suspect]
     Active Substance: IDARUBICIN
     Indication: T-cell type acute leukaemia
     Dosage: 20 MG, 1X/DAY
     Route: 041
     Dates: start: 20220223, end: 20220323
  4. IDARUBICIN [Suspect]
     Active Substance: IDARUBICIN
     Indication: Chemotherapy
     Dosage: 13 MG, 1X/DAY
     Route: 041
     Dates: start: 20220224, end: 20220324
  5. IDARUBICIN [Suspect]
     Active Substance: IDARUBICIN
     Dosage: 10 MG, 1X/DAY
     Route: 041
     Dates: start: 20220225, end: 20220325
  6. IFOSFAMIDE [Suspect]
     Active Substance: IFOSFAMIDE
     Indication: T-cell type acute leukaemia
     Dosage: 2.7 G, 1X/DAY
     Route: 041
     Dates: start: 20220222, end: 20220227
  7. IFOSFAMIDE [Suspect]
     Active Substance: IFOSFAMIDE
     Indication: Chemotherapy
  8. DXM [Concomitant]
     Dosage: 18 MG, 1X/DAY
     Dates: start: 20220218

REACTIONS (4)
  - Myelosuppression [Recovering/Resolving]
  - Platelet count decreased [Recovering/Resolving]
  - White blood cell count decreased [Recovering/Resolving]
  - Neutrophil count decreased [Recovering/Resolving]

NARRATIVE: CASE EVENT DATE: 20220302
